FAERS Safety Report 7204334-7 (Version None)
Quarter: 2010Q4

REPORT INFORMATION
  Report Type: 
  Country: None (occurrence: None)
  Receive Date: 20101230
  Receipt Date: 20101220
  Transmission Date: 20110411
  Serious: Yes (Other)
  Sender: FDA-Public Use
  Company Number: US-PURDUE-USA-2010-0047340

PATIENT
  Sex: Male
  Weight: 124.26 kg

DRUGS (1)
  1. OXYCONTIN [Suspect]
     Indication: EPICONDYLITIS
     Dosage: 80 MG, SEE TEXT
     Dates: start: 20100824

REACTIONS (6)
  - FOREIGN BODY [None]
  - INADEQUATE ANALGESIA [None]
  - MEDICATION RESIDUE [None]
  - PAIN [None]
  - PRODUCT SIZE ISSUE [None]
  - PRODUCT TASTE ABNORMAL [None]
